FAERS Safety Report 15949191 (Version 1)
Quarter: 2019Q1

REPORT INFORMATION
  Report Type: Spontaneous
  Country: US (occurrence: US)
  Receive Date: 20190212
  Receipt Date: 20190212
  Transmission Date: 20190417
  Serious: Yes (Hospitalization, Other)
  Sender: FDA-Public Use
  Company Number: US-SA-2019SA039547

PATIENT
  Age: 64 Year
  Sex: Female

DRUGS (1)
  1. PRALUENT [Suspect]
     Active Substance: ALIROCUMAB
     Dosage: 75 MG
     Route: 058
     Dates: start: 201809, end: 201901

REACTIONS (7)
  - Pancreatitis [Not Recovered/Not Resolved]
  - Vomiting [Not Recovered/Not Resolved]
  - Gallbladder disorder [Not Recovered/Not Resolved]
  - Nausea [Not Recovered/Not Resolved]
  - Diarrhoea [Not Recovered/Not Resolved]
  - Large intestine perforation [Not Recovered/Not Resolved]
  - Colitis [Not Recovered/Not Resolved]
